FAERS Safety Report 19306064 (Version 1)
Quarter: 2021Q2

REPORT INFORMATION
  Report Type: Spontaneous
  Country: US (occurrence: US)
  Receive Date: 20210525
  Receipt Date: 20210525
  Transmission Date: 20210717
  Serious: No
  Sender: FDA-Public Use
  Company Number: US-PFIZER INC-2021215795

PATIENT
  Age: 71 Year
  Sex: Female

DRUGS (1)
  1. XANAX XR [Suspect]
     Active Substance: ALPRAZOLAM
     Indication: IRRITABLE BOWEL SYNDROME
     Dosage: 0.5 MG, 2X/DAY

REACTIONS (4)
  - Off label use [Unknown]
  - Feeling abnormal [Unknown]
  - Drug effective for unapproved indication [Unknown]
  - Product dose omission issue [Unknown]
